FAERS Safety Report 9283763 (Version 3)
Quarter: 2013Q2

REPORT INFORMATION
  Report Type: Spontaneous
  Country: JP (occurrence: JP)
  Receive Date: 20130510
  Receipt Date: 20130605
  Transmission Date: 20140414
  Serious: Yes (Death, Other)
  Sender: FDA-Public Use
  Company Number: PHHY2013JP045632

PATIENT
  Age: 72 Year
  Sex: Male

DRUGS (6)
  1. CARBOPLATIN SANDOZ [Suspect]
     Indication: SQUAMOUS CELL CARCINOMA OF SKIN
     Dosage: 150 MG, UNK
     Dates: start: 20071116, end: 20071116
  2. CARBOPLATIN SANDOZ [Suspect]
     Dosage: 150 MG, TOTAL OF 5 DOSES
     Dates: start: 20071130, end: 20071214
  3. CARBOPLATIN SANDOZ [Suspect]
     Dosage: 450 MG, DAY 1, 4 COURSES
     Dates: start: 20080307, end: 20080609
  4. PACLITAXEL [Suspect]
     Indication: SQUAMOUS CELL CARCINOMA OF SKIN
     Dosage: 30 MG/M2, UNK
     Dates: start: 20071116, end: 20071116
  5. TS-1 [Concomitant]
     Indication: SQUAMOUS CELL CARCINOMA OF SKIN
     Dosage: 80 MG/BODY/DAY
     Dates: start: 20071128, end: 20071221
  6. 5-FU [Concomitant]
     Indication: SQUAMOUS CELL CARCINOMA OF SKIN
     Dosage: 1630 MG/M2, DAY1-4 EVERY 4 WEEKS
     Dates: start: 20080307, end: 20080609

REACTIONS (8)
  - Gastrointestinal haemorrhage [Fatal]
  - Bacteraemia [Fatal]
  - Joint contracture [Unknown]
  - Dementia [Unknown]
  - Malignant neoplasm progression [Unknown]
  - Squamous cell carcinoma of skin [Unknown]
  - Cellulitis [Recovering/Resolving]
  - Activities of daily living impaired [Unknown]
